FAERS Safety Report 5984372-2 (Version None)
Quarter: 2008Q4

REPORT INFORMATION
  Report Type: 
  Country: None (occurrence: None)
  Receive Date: 20081208
  Receipt Date: 20081202
  Transmission Date: 20090506
  Serious: Yes (Hospitalization, Other)
  Sender: FDA-Public Use
  Company Number: PHHY2008JP19476

PATIENT
  Sex: Male

DRUGS (11)
  1. LOCHOL [Suspect]
     Indication: TRANSIENT ISCHAEMIC ATTACK
     Dosage: 30 MG/DAY
     Route: 048
     Dates: start: 20080715, end: 20080731
  2. ANPLAG [Concomitant]
     Dosage: 200MG
     Route: 048
     Dates: start: 20080715, end: 20080731
  3. ANPLAG [Concomitant]
     Dosage: UNK
     Dates: start: 20080820
  4. PLETAL [Concomitant]
     Dosage: 200 MG
     Route: 048
     Dates: start: 20080715, end: 20080731
  5. PLETAL [Concomitant]
     Dosage: UNK
     Dates: start: 20080820
  6. BLOPRESS [Concomitant]
     Dosage: 8 MG UNK
     Route: 048
     Dates: start: 20080715, end: 20080731
  7. BLOPRESS [Concomitant]
     Dosage: UNK
     Dates: start: 20080820
  8. MUCOSTA [Concomitant]
     Dosage: 200MG
     Route: 048
     Dates: start: 20080715, end: 20080731
  9. MUCOSTA [Concomitant]
     Dosage: UNK
     Dates: start: 20080820
  10. SALOBEL [Concomitant]
     Dosage: 100MG
     Route: 048
     Dates: start: 20080715, end: 20080731
  11. SALOBEL [Concomitant]
     Dosage: UNK
     Dates: start: 20080820

REACTIONS (7)
  - BLOOD CREATINE PHOSPHOKINASE INCREASED [None]
  - DIARRHOEA [None]
  - ENTEROCOLITIS [None]
  - GAIT DISTURBANCE [None]
  - MALAISE [None]
  - MUSCULAR WEAKNESS [None]
  - PYREXIA [None]
